FAERS Safety Report 23387850 (Version 1)
Quarter: 2024Q1

REPORT INFORMATION
  Report Type: Spontaneous
  Country: CN (occurrence: CN)
  Receive Date: 20240110
  Receipt Date: 20240110
  Transmission Date: 20240410
  Serious: Yes (Life-Threatening, Other)
  Sender: FDA-Public Use
  Company Number: None

PATIENT
  Age: 70 Year
  Sex: Female
  Weight: 60 kg

DRUGS (14)
  1. CYCLOPHOSPHAMIDE [Suspect]
     Active Substance: CYCLOPHOSPHAMIDE
     Indication: Gastrointestinal lymphoma
     Dosage: 1000 MG, ONE TIME IN ONE DAY, ST, D1, DILUTED WITH 100 ML OF 0.9% SODIUM CHLORIDE, 1 CYCLE
     Route: 041
     Dates: start: 20231216, end: 20231216
  2. CYCLOPHOSPHAMIDE [Suspect]
     Active Substance: CYCLOPHOSPHAMIDE
     Indication: Chemotherapy
  3. CYCLOPHOSPHAMIDE [Suspect]
     Active Substance: CYCLOPHOSPHAMIDE
     Indication: Neoplasm
  4. SODIUM CHLORIDE [Suspect]
     Active Substance: SODIUM CHLORIDE
     Indication: Medication dilution
     Dosage: 100 ML, ONE TIME IN ONE DAY, ST, D1, USED TO DILUTE 1000 MG OF CYCLOPHOSPHAMIDE, 1 CYCLE
     Route: 041
     Dates: start: 20231216, end: 20231216
  5. SODIUM CHLORIDE [Suspect]
     Active Substance: SODIUM CHLORIDE
     Dosage: 20 ML, ONE TIME IN ONE DAY, ST, D1, USED TO DILUTE 1.8 MG OF VINCRISTINE SULFATE, 1 CYCLE
     Route: 041
     Dates: start: 20231216, end: 20231216
  6. DEXTROSE [Suspect]
     Active Substance: DEXTROSE\DEXTROSE MONOHYDRATE
     Indication: Medication dilution
     Dosage: 100 ML, ONE TIME IN ONE DAY, ST, D1, USED TO DILUTE 90 MG OF PIRARUBICIN HYDROCHLORIDE, 1 CYCLE
     Route: 041
     Dates: start: 20231216, end: 20231216
  7. PIRARUBICIN HYDROCHLORIDE [Suspect]
     Active Substance: PIRARUBICIN HYDROCHLORIDE
     Indication: Gastrointestinal lymphoma
     Dosage: 90 MG, ONE TIME IN ONE DAY, ST, D1, DILUTED WITH 100 ML OF 5% GLUCOSE, 1 CYCLE
     Route: 041
     Dates: start: 20231216, end: 20231216
  8. PIRARUBICIN HYDROCHLORIDE [Suspect]
     Active Substance: PIRARUBICIN HYDROCHLORIDE
     Indication: Chemotherapy
  9. PIRARUBICIN HYDROCHLORIDE [Suspect]
     Active Substance: PIRARUBICIN HYDROCHLORIDE
     Indication: Neoplasm
  10. VINCRISTINE SULFATE [Suspect]
     Active Substance: VINCRISTINE SULFATE
     Indication: Gastrointestinal lymphoma
     Dosage: 1.8 MG, ONE TIME IN ONE DAY, ST, D1, DILUTED WITH 20 ML OF 0.9% SODIUM CHLORIDE, 1 CYCLE
     Route: 041
     Dates: start: 20231216, end: 20231216
  11. VINCRISTINE SULFATE [Suspect]
     Active Substance: VINCRISTINE SULFATE
     Indication: Chemotherapy
  12. VINCRISTINE SULFATE [Suspect]
     Active Substance: VINCRISTINE SULFATE
     Indication: Neoplasm
  13. GRANULOCYTE COLONY-STIMULATING FACTOR NOS [Suspect]
     Active Substance: GRANULOCYTE COLONY-STIMULATING FACTOR NOS
     Indication: Prophylaxis
     Dosage: 200 UG, QD X 3D
     Route: 058
     Dates: start: 20231219
  14. GRANULOCYTE COLONY-STIMULATING FACTOR NOS [Suspect]
     Active Substance: GRANULOCYTE COLONY-STIMULATING FACTOR NOS
     Indication: Granulocyte count decreased

REACTIONS (1)
  - Myelosuppression [Recovered/Resolved]

NARRATIVE: CASE EVENT DATE: 20231226
